FAERS Safety Report 12191977 (Version 1)
Quarter: 2016Q1

REPORT INFORMATION
  Report Type: Spontaneous
  Country: DE (occurrence: DE)
  Receive Date: 20160318
  Receipt Date: 20160318
  Transmission Date: 20160526
  Serious: Yes (Other)
  Sender: FDA-Public Use
  Company Number: DE-PFIZER INC-2016156740

PATIENT
  Age: 1 Day
  Sex: Female
  Weight: 2.48 kg

DRUGS (2)
  1. ZIPRASIDONE HCL [Suspect]
     Active Substance: ZIPRASIDONE HYDROCHLORIDE
     Indication: PSYCHOTIC DISORDER
     Dosage: DOSAGE BETWEEN 160 MG/D AND 120 MG/D
     Route: 064
     Dates: start: 20150103, end: 20151008
  2. HALOPERIDOL-JANSSEN [Suspect]
     Active Substance: HALOPERIDOL
     Indication: PSYCHOTIC DISORDER
     Dosage: DOSAGE BETWEEN 2 MG/D AND 1 MG/D
     Route: 064
     Dates: start: 20150103, end: 20151008

REACTIONS (6)
  - Respiratory disorder neonatal [Recovered/Resolved]
  - Caesarean section [None]
  - Small for dates baby [Recovered/Resolved]
  - Maternal exposure during pregnancy [Recovered/Resolved]
  - Agitation neonatal [Recovered/Resolved]
  - Maternal drugs affecting foetus [None]

NARRATIVE: CASE EVENT DATE: 20151008
